FAERS Safety Report 8610643-7 (Version None)
Quarter: 2012Q3

REPORT INFORMATION
  Report Type: 
  Country: None (occurrence: None)
  Receive Date: 20120808
  Receipt Date: 20120731
  Transmission Date: 20120928
  Serious: Yes (Other)
  Sender: FDA-Public Use
  Company Number: 137326

PATIENT
  Age: 44 Year
  Sex: Female

DRUGS (1)
  1. CERUBIDINE [Suspect]
     Indication: ACUTE LEUKAEMIA
     Dosage: 104.42MG 1X/DAY IV
     Route: 042
     Dates: start: 20080722, end: 20080724

REACTIONS (8)
  - INFECTION [None]
  - SEPSIS [None]
  - GASTROINTESTINAL HAEMORRHAGE [None]
  - LUNG DISORDER [None]
  - BONE MARROW FAILURE [None]
  - MESENTERIC PANNICULITIS [None]
  - FEBRILE BONE MARROW APLASIA [None]
  - HAEMORRHAGE [None]
